FAERS Safety Report 9551649 (Version 2)
Quarter: 2016Q3

REPORT INFORMATION
  Report Type: Spontaneous
  Country: US (occurrence: US)
  Receive Date: 20130925
  Receipt Date: 20160812
  Transmission Date: 20161109
  Serious: Yes (Other)
  Sender: FDA-Public Use
  Company Number: US-RANBAXY-2013US-73452

PATIENT
  Age: 26 Year
  Sex: Male

DRUGS (1)
  1. TOPIRAMATE. [Suspect]
     Active Substance: TOPIRAMATE
     Indication: COMPULSIVE SEXUAL BEHAVIOUR
     Dosage: 50 MG, DAILY
     Route: 065

REACTIONS (2)
  - Cognitive disorder [Recovered/Resolved]
  - Off label use [Unknown]
